FAERS Safety Report 8370904-6 (Version None)
Quarter: 2012Q2

REPORT INFORMATION
  Report Type: 
  Country: None (occurrence: None)
  Receive Date: 20120518
  Receipt Date: 20120308
  Transmission Date: 20120825
  Serious: No
  Sender: FDA-Public Use
  Company Number: US-ASTRAZENECA-2012SE16736

PATIENT
  Age: 71 Year
  Sex: Female

DRUGS (6)
  1. PRILOSEC OTC [Suspect]
     Dosage: 1 TABLET, 1-2 TIMES PER DAY
     Route: 048
     Dates: start: 20120308
  2. MULTI-VITAMINS [Concomitant]
  3. IBUPROFEN [Concomitant]
  4. CALCIUM [Concomitant]
  5. VITAMIN D [Concomitant]
  6. LEVOTHYROXINE SODIUM [Concomitant]

REACTIONS (3)
  - VITAMIN D DECREASED [None]
  - HAEMOGLOBIN DECREASED [None]
  - BLOOD IRON DECREASED [None]
